FAERS Safety Report 8114790-8 (Version None)
Quarter: 2012Q1

REPORT INFORMATION
  Report Type: 
  Country: None (occurrence: None)
  Receive Date: 20120206
  Receipt Date: 20120124
  Transmission Date: 20120608
  Serious: Yes (Hospitalization, Other)
  Sender: FDA-Public Use
  Company Number: US-ELI_LILLY_AND_COMPANY-US201106001797

PATIENT
  Sex: Female

DRUGS (3)
  1. FORTEO [Suspect]
     Indication: OSTEOPOROSIS
     Dosage: 20 UG, QD
     Route: 065
  2. FORTEO [Suspect]
     Dosage: 20 UG, QD
     Route: 065
  3. FORTEO [Suspect]
     Dosage: 20 UG, QD
     Route: 065

REACTIONS (14)
  - SPINAL COLUMN INJURY [None]
  - BEDRIDDEN [None]
  - BONE PAIN [None]
  - CHEST CRUSHING [None]
  - LOWER LIMB FRACTURE [None]
  - PAIN IN EXTREMITY [None]
  - ARTHROFIBROSIS [None]
  - INJURY [None]
  - GOITRE [None]
  - ENCHONDROMA [None]
  - DYSPHAGIA [None]
  - MUSCULOSKELETAL STIFFNESS [None]
  - PAIN [None]
  - MYALGIA [None]
